FAERS Safety Report 6372895-6 (Version None)
Quarter: 2009Q3

REPORT INFORMATION
  Report Type: 
  Country: None (occurrence: None)
  Receive Date: 20090924
  Receipt Date: 20081204
  Transmission Date: 20100115
  Serious: No
  Sender: FDA-Public Use
  Company Number: US-ASTRAZENECA-2008UW27084

PATIENT
  Age: 54 Year
  Sex: Female
  Weight: 79.8 kg

DRUGS (4)
  1. SEROQUEL [Suspect]
     Indication: MANIA
     Route: 048
  2. TEGRETOL [Concomitant]
  3. KLONOPIN [Concomitant]
  4. NORVASC [Concomitant]

REACTIONS (6)
  - BURNING SENSATION [None]
  - DERMATITIS [None]
  - FEELING ABNORMAL [None]
  - HEADACHE [None]
  - INSOMNIA [None]
  - PSYCHOMOTOR HYPERACTIVITY [None]
